FAERS Safety Report 19267186 (Version 2)
Quarter: 2021Q3

REPORT INFORMATION
  Report Type: Spontaneous
  Country: US (occurrence: US)
  Receive Date: 20210517
  Receipt Date: 20210709
  Transmission Date: 20211014
  Serious: No
  Sender: FDA-Public Use
  Company Number: US-ASTRAZENECA-2021A395583

PATIENT
  Sex: Female
  Weight: 106.6 kg

DRUGS (2)
  1. BYDUREON BCISE [Suspect]
     Active Substance: EXENATIDE
     Indication: WEIGHT DECREASED
     Route: 058
  2. BYDUREON [Suspect]
     Active Substance: EXENATIDE
     Indication: WEIGHT DECREASED
     Route: 058

REACTIONS (7)
  - Glycosylated haemoglobin decreased [Recovering/Resolving]
  - Injection site mass [Unknown]
  - Pain in extremity [Unknown]
  - Device leakage [Unknown]
  - Weight decreased [Unknown]
  - Decreased appetite [Unknown]
  - Device issue [Unknown]
